FAERS Safety Report 23703952 (Version 1)
Quarter: 2024Q2

REPORT INFORMATION
  Report Type: Spontaneous
  Country: US (occurrence: US)
  Receive Date: 20240403
  Receipt Date: 20240403
  Transmission Date: 20240715
  Serious: Yes (Other)
  Sender: FDA-Public Use
  Company Number: US-009507513-2404USA000141

PATIENT
  Age: 65 Year
  Sex: Male

DRUGS (4)
  1. VERQUVO [Suspect]
     Active Substance: VERICIGUAT
     Indication: Cardiac failure
     Dosage: 1 TABLET / ONCE DAILY
     Route: 048
     Dates: start: 20240327, end: 20240328
  2. MILRINONE [Suspect]
     Active Substance: MILRINONE
     Indication: Cardiac failure
     Dosage: UNK
  3. MILRINONE [Suspect]
     Active Substance: MILRINONE
     Dosage: LOWERED THE DOSE
     Dates: start: 20240327, end: 20240327
  4. MILRINONE [Suspect]
     Active Substance: MILRINONE
     Dosage: BACK ON THE ORIGINAL DOSE
     Dates: start: 20240328

REACTIONS (1)
  - Ischaemic hepatitis [Unknown]

NARRATIVE: CASE EVENT DATE: 20240328
